FAERS Safety Report 11875695 (Version 1)
Quarter: 2020Q3

REPORT INFORMATION
  Report Type: Spontaneous
  Country: US (occurrence: US)
  Receive Date: 20151229
  Receipt Date: 20151229
  Transmission Date: 20201104
  Serious: Yes (Hospitalization, Other)
  Sender: FDA-Public Use
  Company Number: US-TEVA-620896USA

PATIENT
  Age: 9 Year
  Sex: Female

DRUGS (17)
  1. CYPROHEPTADINE. [Concomitant]
     Active Substance: CYPROHEPTADINE
     Dosage: 2 MG, ONE?HALF TABLET BY MOUTH
     Route: 048
  2. MONTELUKAST [Concomitant]
     Active Substance: MONTELUKAST SODIUM
     Dosage: EVERY NIGHT BEDTIME
     Route: 048
  3. ONDANSETRON [Suspect]
     Active Substance: ONDANSETRON
     Dosage: 16 MILLIGRAM DAILY;
     Route: 048
  4. MIDAZOLAM HYDROCHLORIDE. [Concomitant]
     Active Substance: MIDAZOLAM HYDROCHLORIDE
     Dosage: 2.091 MG, 2.09ML IV ONCE
     Route: 042
  5. FAMOTIDINE. [Concomitant]
     Active Substance: FAMOTIDINE
     Dosage: 10 MG, 1 ML INTRAVENOUSLY EVERY 12 H
     Route: 042
  6. RISPERIDONE. [Concomitant]
     Active Substance: RISPERIDONE
     Dosage: FOLLOW?UP DECREASED TO 0.125 MG, ONE?HALF TABLET BY MOUTH
     Route: 048
  7. HYOSCYAMINE. [Suspect]
     Active Substance: HYOSCYAMINE
     Indication: DIARRHOEA
     Dosage: .25 MILLIGRAM DAILY;
     Route: 048
  8. SERTRALINE [Suspect]
     Active Substance: SERTRALINE HYDROCHLORIDE
     Indication: ANXIETY
     Dosage: 6.25MG; INCREASED TO 12.5 MG IN 2 WEEKS
     Route: 048
  9. PROMETHAZINE [Concomitant]
     Active Substance: PROMETHAZINE HYDROCHLORIDE
     Route: 048
  10. RISPERIDONE. [Concomitant]
     Active Substance: RISPERIDONE
     Dosage: 0.125 MG, ONE?HALF TABLET BY MOUTH
     Route: 048
  11. RISPERIDONE. [Concomitant]
     Active Substance: RISPERIDONE
     Dosage: 0.25 MG, 1 TABLET BY MOUTH EVERY NIGHT AT BEDTIME
     Route: 048
  12. SERTRALINE [Suspect]
     Active Substance: SERTRALINE HYDROCHLORIDE
     Indication: ANXIETY
     Dosage: EVERY MORNING
     Route: 048
  13. NITAZOXANIDE [Concomitant]
     Active Substance: NITAZOXANIDE
     Dosage: 200 MG, 10 ML BY MOUTH EVERY 12 HOUR
     Route: 048
  14. DIPHENHYDRAMINE. [Suspect]
     Active Substance: DIPHENHYDRAMINE
     Indication: RASH
     Dosage: 25 MILLIGRAM DAILY; BEDTIME
     Route: 048
  15. OMEPRAZOLE. [Concomitant]
     Active Substance: OMEPRAZOLE
     Route: 048
  16. PARACETAMOL [Concomitant]
     Active Substance: ACETAMINOPHEN
     Dosage: 320 MG, 10 ML BY MOUTH EVERY 4 H
     Route: 048
  17. MELATONIN [Concomitant]
     Active Substance: MELATONIN
     Dosage: BEDTIME
     Route: 048

REACTIONS (2)
  - Serotonin syndrome [Recovering/Resolving]
  - Anticholinergic syndrome [Recovering/Resolving]
